FAERS Safety Report 19304707 (Version 3)
Quarter: 2021Q4

REPORT INFORMATION
  Report Type: Report from Study
  Country: AR (occurrence: AR)
  Receive Date: 20210525
  Receipt Date: 20211209
  Transmission Date: 20220303
  Serious: Yes (Hospitalization)
  Sender: FDA-Public Use
  Company Number: AR-NOVARTISPH-PHHY2017AR156811

PATIENT
  Sex: Female

DRUGS (3)
  1. SANDOSTATIN LAR DEPOT [Suspect]
     Active Substance: OCTREOTIDE ACETATE
     Indication: Acromegaly
     Dosage: 20 MG, UNK (EVERY 28 DAYS)
     Route: 065
     Dates: start: 200501
  2. SANDOSTATIN LAR DEPOT [Suspect]
     Active Substance: OCTREOTIDE ACETATE
     Dosage: 20 MG, QMO, (EVERY 29 DAYS)
     Route: 065
     Dates: start: 20150101
  3. SANDOSTATIN LAR DEPOT [Suspect]
     Active Substance: OCTREOTIDE ACETATE

REACTIONS (15)
  - Pneumonia [Not Recovered/Not Resolved]
  - Emphysema [Not Recovered/Not Resolved]
  - Confusional state [Unknown]
  - Chronic obstructive pulmonary disease [Unknown]
  - Cortisol decreased [Unknown]
  - Lung disorder [Unknown]
  - Swelling [Unknown]
  - Gait disturbance [Unknown]
  - Blood prolactin increased [Unknown]
  - Insulin-like growth factor [Unknown]
  - Bone pain [Unknown]
  - Arthralgia [Unknown]
  - Blood cholesterol decreased [Unknown]
  - Infection [Unknown]
  - Memory impairment [Unknown]
